FAERS Safety Report 8687217 (Version 3)
Quarter: 2013Q3

REPORT INFORMATION
  Report Type: Spontaneous
  Country: GB (occurrence: GB)
  Receive Date: 20120727
  Receipt Date: 20130703
  Transmission Date: 20140515
  Serious: Yes (Life-Threatening, Hospitalization, Disabling, Other)
  Sender: FDA-Public Use
  Company Number: PHFR2012GB004143

PATIENT
  Age: 37 Year
  Sex: Male

DRUGS (3)
  1. CLOZARIL [Suspect]
     Indication: SCHIZOPHRENIA
     Dosage: 400 MG, DAILY
     Route: 048
     Dates: start: 20110906
  2. DIAZEPAM [Concomitant]
     Indication: ANXIETY
     Dosage: 5 MG, PRN
     Route: 048
     Dates: start: 2007
  3. BUSPIRONE [Concomitant]
     Indication: RESTLESSNESS
     Dosage: 5 MG, BID
     Route: 048
     Dates: start: 20110907

REACTIONS (5)
  - Coma [Recovered/Resolved]
  - Loss of consciousness [Unknown]
  - Head injury [Recovered/Resolved]
  - Sedation [Recovered/Resolved]
  - Diabetes mellitus inadequate control [Unknown]
